FAERS Safety Report 5486898-7 (Version None)
Quarter: 2007Q3

REPORT INFORMATION
  Report Type: 
  Country: None (occurrence: None)
  Receive Date: 20070925
  Receipt Date: 20070727
  Transmission Date: 20080115
  Serious: No
  Sender: FDA-Public Use
  Company Number: 2007US001327

PATIENT
  Sex: Female

DRUGS (4)
  1. VESICARE [Suspect]
     Indication: POLLAKIURIA
     Dosage: UID/QD
     Dates: start: 20060901, end: 20061201
  2. DETROL LA [Concomitant]
  3. VYTORIN [Concomitant]
  4. BENICAR [Concomitant]

REACTIONS (1)
  - DRUG INEFFECTIVE [None]
